FAERS Safety Report 9454602 (Version 1)
Quarter: 2013Q3

REPORT INFORMATION
  Report Type: Report from Study
  Country: US (occurrence: US)
  Receive Date: 20130812
  Receipt Date: 20130812
  Transmission Date: 20140515
  Serious: Yes (Death, Other)
  Sender: FDA-Public Use
  Company Number: US-CELGENEUS-163-C4047-13081194

PATIENT
  Sex: 0

DRUGS (2)
  1. CC-4047 [Suspect]
     Indication: MYELOFIBROSIS
     Dosage: 3 MILLIGRAM
     Route: 065
  2. CC-4047 [Suspect]
     Dosage: .5 MILLIGRAM
     Route: 065

REACTIONS (17)
  - Myocardial infarction [Fatal]
  - Renal failure [Fatal]
  - Diabetic complication [Fatal]
  - Myelofibrosis [Fatal]
  - Sepsis [Fatal]
  - Necrotising fasciitis [Fatal]
  - Death [Fatal]
  - Acute myeloid leukaemia [Unknown]
  - Hypersensitivity [Unknown]
  - Rash pruritic [Unknown]
  - Fatigue [Unknown]
  - Asthenia [Unknown]
  - Peripheral sensory neuropathy [Unknown]
  - Neutropenia [Unknown]
  - Anaemia [Unknown]
  - Thrombocytopenia [Unknown]
  - No therapeutic response [Unknown]
